FAERS Safety Report 5507260-4 (Version None)
Quarter: 2007Q4

REPORT INFORMATION
  Report Type: 
  Country: None (occurrence: None)
  Receive Date: 20071106
  Receipt Date: 20071026
  Transmission Date: 20080405
  Serious: Yes (Other)
  Sender: FDA-Public Use
  Company Number: PHFR2007GB03153

PATIENT
  Age: 44 Year
  Sex: Female

DRUGS (3)
  1. CARBAMAZEPINE [Suspect]
     Indication: AGITATION
     Dosage: 10 MG, QD
     Route: 048
     Dates: start: 20050101
  2. OLANZAPINE [Suspect]
     Indication: EPILEPSY
     Dosage: 10 MG, QD
     Route: 048
     Dates: start: 20050101, end: 20070519
  3. EPILIM [Concomitant]
     Indication: EPILEPSY
     Dosage: 2.1 G, QD
     Route: 065
     Dates: start: 20050101

REACTIONS (4)
  - AGITATION [None]
  - CONDITION AGGRAVATED [None]
  - POOR QUALITY DRUG ADMINISTERED [None]
  - RESTLESSNESS [None]
